FAERS Safety Report 8285977-9 (Version None)
Quarter: 2012Q2

REPORT INFORMATION
  Report Type: 
  Country: None (occurrence: None)
  Receive Date: 20120416
  Receipt Date: 20120405
  Transmission Date: 20120825
  Serious: Yes (Hospitalization)
  Sender: FDA-Public Use
  Company Number: US-BRISTOL-MYERS SQUIBB COMPANY-16481764

PATIENT
  Age: 57 Year
  Sex: Male

DRUGS (7)
  1. YERVOY [Suspect]
     Indication: METASTATIC MALIGNANT MELANOMA
     Dosage: 4 TIMES,LAST DOSE: 9FEB12
     Route: 042
     Dates: start: 20111205, end: 20120209
  2. PRILOSEC [Concomitant]
  3. ATIVAN [Concomitant]
  4. ALTACE [Concomitant]
  5. LIPITOR [Concomitant]
  6. GABAPENTIN [Concomitant]
  7. TORADOL [Concomitant]

REACTIONS (1)
  - MYOSITIS [None]
